FAERS Safety Report 15074557 (Version 1)
Quarter: 2018Q2

REPORT INFORMATION
  Report Type: Spontaneous
  Country: US (occurrence: US)
  Receive Date: 20180627
  Receipt Date: 20180627
  Transmission Date: 20180711
  Serious: No
  Sender: FDA-Public Use
  Company Number: US-SAOL THERAPEUTICS-2018SAO00492

PATIENT
  Age: 45 Year
  Weight: 106.12 kg

DRUGS (2)
  1. COMPOUNDED BACLOFEN [Suspect]
     Active Substance: BACLOFEN
     Dosage: 434.9 ?G, \DAY
     Route: 037
     Dates: start: 20171120
  2. COMPOUNDED BACLOFEN [Suspect]
     Active Substance: BACLOFEN
     Dosage: 394.6 ?G, \DAY
     Route: 037
     Dates: start: 20170828, end: 20171120

REACTIONS (4)
  - Implant site extravasation [Not Recovered/Not Resolved]
  - Musculoskeletal stiffness [Not Recovered/Not Resolved]
  - Device dislocation [Not Recovered/Not Resolved]
  - Device malfunction [Recovered/Resolved]

NARRATIVE: CASE EVENT DATE: 20170828
